FAERS Safety Report 9569126 (Version 2)
Quarter: 2013Q3

REPORT INFORMATION
  Report Type: Spontaneous
  Country: US (occurrence: US)
  Receive Date: 20130930
  Receipt Date: 20130930
  Transmission Date: 20140515
  Serious: No
  Sender: FDA-Public Use
  Company Number: US-AMGEN-USASP2013035543

PATIENT
  Age: 53 Year
  Sex: Female
  Weight: 57.6 kg

DRUGS (10)
  1. ENBREL [Suspect]
     Indication: PRODUCT USED FOR UNKNOWN INDICATION
     Dosage: 50 MG, QWK
     Route: 058
  2. XANAX [Concomitant]
     Dosage: 1 MG, UNK
     Route: 048
  3. METHOTREXATE [Concomitant]
     Dosage: 2.5 MG, UNK
     Route: 048
  4. VICODIN [Concomitant]
     Dosage: UNK, 5-300 MG
     Route: 048
  5. HYDROCHLOROTH [Concomitant]
     Dosage: 50 MG, UNK
     Route: 048
  6. ESTRADIOL [Concomitant]
     Dosage: 0.025 MG, UNK
     Route: 048
  7. BIOTIN [Concomitant]
     Dosage: 5000 UNK, UNK
     Route: 048
  8. FOLIC ACID [Concomitant]
     Dosage: 20 MG, UNK
     Route: 048
  9. PRENATABS RX [Concomitant]
     Dosage: UNK
     Route: 048
  10. ZOLPIDEM [Concomitant]
     Dosage: 5 MG, UNK
     Route: 048

REACTIONS (4)
  - Blister [Recovered/Resolved]
  - Muscle spasms [Recovered/Resolved]
  - Contusion [Unknown]
  - Rheumatoid nodule [Unknown]
